FAERS Safety Report 9060757 (Version 2)
Quarter: 2013Q2

REPORT INFORMATION
  Report Type: Report from Study
  Country: US (occurrence: US)
  Receive Date: 20130204
  Receipt Date: 20130528
  Transmission Date: 20140414
  Serious: Yes (Hospitalization)
  Sender: FDA-Public Use
  Company Number: US-SANOFI-AVENTIS-2013SA006199

PATIENT
  Age: 51 Year
  Sex: Male
  Weight: 181.4 kg

DRUGS (5)
  1. PLAVIX [Suspect]
     Indication: ANTIPLATELET THERAPY
     Dosage: 600 MG PERI-PROCEDURAL LOADING DOSE
     Route: 048
     Dates: start: 20110113
  2. PLAVIX [Suspect]
     Indication: ANTIPLATELET THERAPY
     Dosage: PERIPROCEDURAL LOADING DOSE
     Route: 048
     Dates: start: 20110112, end: 20110112
  3. ASPIRIN [Suspect]
     Indication: ANTIPLATELET THERAPY
     Route: 048
     Dates: start: 20090915
  4. BARE METAL STENT [Suspect]
     Indication: CORONARY ARTERY DISEASE
     Dates: start: 20110112
  5. COREG [Concomitant]
     Indication: HYPERTENSION

REACTIONS (2)
  - Cellulitis [Recovered/Resolved]
  - Renal failure acute [Recovered/Resolved]
